FAERS Safety Report 21178154 (Version 1)
Quarter: 2022Q3

REPORT INFORMATION
  Report Type: Other
  Country: IE (occurrence: None)
  Receive Date: 20220805
  Receipt Date: 20220805
  Transmission Date: 20221026
  Serious: Yes (Other)
  Sender: FDA-Public Use
  Company Number: IE-ROCHE-3150268

PATIENT
  Sex: Female

DRUGS (1)
  1. OCREVUS [Suspect]
     Active Substance: OCRELIZUMAB
     Indication: Product used for unknown indication
     Dosage: DOSE AND UNIT: 300MGS X 2 VIALS
     Route: 042

REACTIONS (2)
  - COVID-19 [Recovering/Resolving]
  - Asthma [Recovering/Resolving]
